FAERS Safety Report 7517643-9 (Version None)
Quarter: 2011Q2

REPORT INFORMATION
  Report Type: 
  Country: None (occurrence: None)
  Receive Date: 20110602
  Receipt Date: 20110522
  Transmission Date: 20111010
  Serious: Yes (Hospitalization, Other)
  Sender: FDA-Public Use
  Company Number: DZ-AMGEN-DZASP2011026955

PATIENT
  Age: 9 Year
  Sex: Male

DRUGS (3)
  1. ENBREL [Suspect]
     Indication: JUVENILE ARTHRITIS
     Dosage: 0.4 MG/KG, WEEKLY
     Dates: start: 20110206, end: 20110513
  2. ENBREL [Suspect]
     Dosage: DOSE IN 2010 NOT PROVIDED
     Dates: start: 20100101
  3. INDOMETHACIN SODIUM [Concomitant]
     Indication: PAIN
     Dosage: 75 MG, 1X/DAY
     Route: 048
     Dates: start: 20110513

REACTIONS (1)
  - THROMBOCYTOPENIC PURPURA [None]
